FAERS Safety Report 14942234 (Version 1)
Quarter: 2018Q2

REPORT INFORMATION
  Report Type: Spontaneous
  Country: AT (occurrence: AT)
  Receive Date: 20180528
  Receipt Date: 20180528
  Transmission Date: 20180711
  Serious: Yes (Other)
  Sender: FDA-Public Use
  Company Number: AT-CONCORDIA PHARMACEUTICALS INC.-E2B_00011776

PATIENT
  Age: 50 Year
  Sex: Male

DRUGS (14)
  1. EBETREXAT [Suspect]
     Active Substance: METHOTREXATE SODIUM
     Route: 065
     Dates: start: 20110424, end: 20110627
  2. EBETREXAT [Suspect]
     Active Substance: METHOTREXATE SODIUM
     Route: 065
     Dates: start: 20080409
  3. PREDNISOLONE. [Suspect]
     Active Substance: PREDNISOLONE
     Dates: start: 200311
  4. OMEGAVEN [Suspect]
     Active Substance: FISH OIL
     Route: 065
     Dates: start: 2006
  5. OMEGAVEN [Suspect]
     Active Substance: FISH OIL
     Route: 065
     Dates: start: 20110627
  6. EBETREXAT [Suspect]
     Active Substance: METHOTREXATE SODIUM
     Route: 065
  7. PREDNISOLONE. [Suspect]
     Active Substance: PREDNISOLONE
     Indication: RHEUMATOID ARTHRITIS
     Route: 065
     Dates: start: 2003
  8. PREDNISOLONE. [Suspect]
     Active Substance: PREDNISOLONE
     Dates: start: 20110627
  9. OMEGAVEN [Suspect]
     Active Substance: FISH OIL
     Indication: PRODUCT USED FOR UNKNOWN INDICATION
     Route: 065
     Dates: start: 2012
  10. OMEGAVEN [Suspect]
     Active Substance: FISH OIL
     Route: 065
     Dates: start: 2005
  11. EBETREXAT [Suspect]
     Active Substance: METHOTREXATE SODIUM
     Indication: RHEUMATOID ARTHRITIS
     Route: 065
  12. EBETREXAT [Suspect]
     Active Substance: METHOTREXATE SODIUM
     Route: 065
     Dates: start: 201311
  13. PREDNISOLONE. [Suspect]
     Active Substance: PREDNISOLONE
     Dates: start: 20080619
  14. EBETREXAT [Suspect]
     Active Substance: METHOTREXATE SODIUM
     Route: 065
     Dates: start: 20030519

REACTIONS (10)
  - Thrombosis [Unknown]
  - Condition aggravated [Recovering/Resolving]
  - Paracentesis [Unknown]
  - Frustration tolerance decreased [Unknown]
  - Bronchitis [Unknown]
  - Arthritis [Unknown]
  - Joint effusion [Unknown]
  - Sensation of foreign body [Recovered/Resolved]
  - Synovectomy [Unknown]
  - Platelet count decreased [Recovering/Resolving]

NARRATIVE: CASE EVENT DATE: 20080619
